FAERS Safety Report 4333613-6 (Version None)
Quarter: 2004Q2

REPORT INFORMATION
  Report Type: 
  Country: None (occurrence: None)
  Receive Date: 20040402
  Receipt Date: 20040326
  Transmission Date: 20050107
  Serious: Yes (Death)
  Sender: FDA-Public Use
  Company Number: 7693

PATIENT
  Age: 33 Year
  Sex: Female

DRUGS (1)
  1. METHOTREXATE [Suspect]
     Indication: METASTASES TO MENINGES
     Dosage: 15 MG PER CYCLE   , IT
     Route: 037

REACTIONS (13)
  - APHASIA [None]
  - CEREBRAL INFARCTION [None]
  - CEREBROVASCULAR STENOSIS [None]
  - DEPRESSED LEVEL OF CONSCIOUSNESS [None]
  - HEMIPARESIS [None]
  - INTRACRANIAL PRESSURE INCREASED [None]
  - ISCHAEMIC CEREBRAL INFARCTION [None]
  - LOSS OF CONSCIOUSNESS [None]
  - NUCLEAR MAGNETIC RESONANCE IMAGING BRAIN ABNORMAL [None]
  - OMMAYA RESERVOIR PLACEMENT [None]
  - PARAPARESIS [None]
  - PUPILS UNEQUAL [None]
  - ULTRASOUND DOPPLER ABNORMAL [None]
